FAERS Safety Report 9135744 (Version 2)
Quarter: 2013Q2

REPORT INFORMATION
  Report Type: Spontaneous
  Country: CA (occurrence: None)
  Receive Date: 20130215
  Receipt Date: 20130613
  Transmission Date: 20140414
  Serious: Yes (Death, Other)
  Sender: FDA-Public Use
  Company Number: ADR-2013-00241

PATIENT
  Sex: 0

DRUGS (1)
  1. BACLOFEN [Suspect]

REACTIONS (1)
  - Death [None]
